FAERS Safety Report 5902706-1 (Version None)
Quarter: 2008Q3

REPORT INFORMATION
  Report Type: 
  Country: None (occurrence: None)
  Receive Date: 20080929
  Receipt Date: 20080929
  Transmission Date: 20090109
  Serious: Yes (Hospitalization)
  Sender: FDA-Public Use
  Company Number: None

PATIENT
  Age: 64 Year
  Sex: Male
  Weight: 61.2356 kg

DRUGS (1)
  1. BACLOFEN [Suspect]
     Indication: MUSCLE SPASMS
     Dosage: 10MG TABLETS TWICE A DAY
     Dates: start: 20080909, end: 20080915

REACTIONS (4)
  - AGGRESSION [None]
  - DELUSION [None]
  - HALLUCINATION [None]
  - MENTAL STATUS CHANGES [None]
